FAERS Safety Report 21793636 (Version 1)
Quarter: 2022Q4

REPORT INFORMATION
  Report Type: Report from Study
  Country: IT (occurrence: IT)
  Receive Date: 20221229
  Receipt Date: 20221229
  Transmission Date: 20230113
  Serious: Yes (Other)
  Sender: FDA-Public Use
  Company Number: None

PATIENT

DRUGS (7)
  1. PEGASPARGASE [Suspect]
     Active Substance: PEGASPARGASE
     Indication: Acute lymphocytic leukaemia recurrent
     Dosage: 1553 IU/DAY
     Route: 042
     Dates: start: 20221121, end: 20221121
  2. DEXAMETHASONE [Suspect]
     Active Substance: DEXAMETHASONE
     Indication: Acute lymphocytic leukaemia recurrent
     Dosage: 15 MG X 2VV/DAY
     Route: 042
     Dates: start: 20221115, end: 20221120
  3. PURINETHOL [Concomitant]
     Active Substance: MERCAPTOPURINE
     Indication: Acute lymphocytic leukaemia recurrent
     Dosage: 150 MG/DAY
     Route: 048
     Dates: start: 20221115, end: 20221119
  4. METHOTREXATE SODIUM [Concomitant]
     Active Substance: METHOTREXATE SODIUM
     Indication: Acute lymphocytic leukaemia recurrent
     Dosage: 155 IV MG ON 15/11/2022, 1397 IV MG ON 16/11/2022
     Route: 042
     Dates: start: 20221115, end: 20221116
  5. METHOTREXATE SODIUM [Concomitant]
     Active Substance: METHOTREXATE SODIUM
     Dosage: 12 MG/DAY
     Route: 037
     Dates: start: 20221116, end: 20221116
  6. CYTARABINE [Concomitant]
     Active Substance: CYTARABINE
     Indication: Acute lymphocytic leukaemia recurrent
     Dosage: 12 MG/DAY
     Route: 037
     Dates: start: 20221116, end: 20221116
  7. METHYLPREDNISOLONE [Concomitant]
     Active Substance: METHYLPREDNISOLONE
     Indication: Acute lymphocytic leukaemia recurrent
     Dosage: 10 MG/DAY
     Route: 037
     Dates: start: 20221116, end: 20221116

REACTIONS (2)
  - Hyperglycaemia [Not Recovered/Not Resolved]
  - Hypertriglyceridaemia [Unknown]

NARRATIVE: CASE EVENT DATE: 20221116
